FAERS Safety Report 11592211 (Version 3)
Quarter: 2015Q4

REPORT INFORMATION
  Report Type: Spontaneous
  Country: DE (occurrence: DE)
  Receive Date: 20151005
  Receipt Date: 20151028
  Transmission Date: 20160304
  Serious: Yes (Life-Threatening, Hospitalization)
  Sender: FDA-Public Use
  Company Number: DE-AMGEN-DEUSP2015102189

PATIENT
  Sex: Male

DRUGS (11)
  1. CYCLOPHOSPHAMIDE. [Suspect]
     Active Substance: CYCLOPHOSPHAMIDE
     Indication: B-CELL LYMPHOMA
     Dosage: 1365 MG, 1 TIMES IN 2 WEEK(S) FOR 1 DAY(S)
     Route: 042
     Dates: start: 20150915, end: 20150915
  2. DOXORUBICINE                       /00330901/ [Suspect]
     Active Substance: DOXORUBICIN
     Indication: B-CELL LYMPHOMA
     Dosage: 91 MG, 1 TIMES IN 2 WEEK(S) FOR 1 DAY(S)
     Route: 042
     Dates: start: 20150915, end: 20150915
  3. ACICLOVIR [Concomitant]
     Active Substance: ACYCLOVIR
     Indication: PROPHYLAXIS
     Dosage: 1600 MG, DAILY
     Route: 048
     Dates: start: 20150706
  4. CIPROFLOXACIN. [Concomitant]
     Active Substance: CIPROFLOXACIN
     Indication: PROPHYLAXIS
     Dosage: 1000 MG, 7 DAYS/CYCLE
     Route: 048
     Dates: start: 20150712
  5. POSACONAZOLE [Concomitant]
     Active Substance: POSACONAZOLE
     Indication: FUNGAL INFECTION
     Dosage: 15 ML, DAILY
     Route: 048
  6. SULFAMETHOXAZOLE AND TRIMETHOPRIM [Concomitant]
     Active Substance: SULFAMETHOXAZOLE\TRIMETHOPRIM
     Indication: PROPHYLAXIS
     Dosage: 1920 MG, 2 DAYS/CYCLE
     Route: 048
     Dates: start: 20150706
  7. MESNA. [Concomitant]
     Active Substance: MESNA
     Indication: PROPHYLAXIS
     Dosage: 900 MG, 1 DAY/CYCLE FOR 1 DAY(S)
     Route: 048
     Dates: start: 20150915, end: 20150915
  8. POTASSIUM SODIUM HYDROGEN CITRATE [Concomitant]
     Indication: PROPHYLAXIS
     Dosage: 3 SPOONS, 1 DAY/CYCLE FOR 1 DAY(S)
     Route: 048
     Dates: start: 20150915, end: 20150915
  9. PEGFILGRASTIM [Suspect]
     Active Substance: PEGFILGRASTIM
     Indication: B-CELL LYMPHOMA
     Dosage: 6 MG, 1 TIMES IN 2 WEEKS FOR 1 DAY(S)
     Route: 058
     Dates: start: 20150918, end: 20150918
  10. VINCRISTINE [Suspect]
     Active Substance: VINCRISTINE
     Indication: B-CELL LYMPHOMA
     Dosage: 3.64 MG, 1 TIMES IN 2 WEEK(S) FOR 1 DAY(S)
     Route: 042
     Dates: start: 20150915, end: 20150915
  11. PREDNISONE. [Suspect]
     Active Substance: PREDNISONE
     Indication: B-CELL LYMPHOMA
     Dosage: 100 MG, 5 DAYS A CYCLE FOR 5 DAY(S)
     Route: 048
     Dates: start: 20150915, end: 20150919

REACTIONS (6)
  - Vertigo [Recovered/Resolved]
  - Thrombocytopenia [Recovered/Resolved]
  - General physical health deterioration [Recovered/Resolved]
  - Leukopenia [Recovered/Resolved]
  - Pneumonia [Recovered/Resolved]
  - Upper respiratory tract infection [Recovered/Resolved]

NARRATIVE: CASE EVENT DATE: 20150924
